FAERS Safety Report 8542445-4 (Version None)
Quarter: 2012Q3

REPORT INFORMATION
  Report Type: 
  Country: None (occurrence: None)
  Receive Date: 20120726
  Receipt Date: 20110720
  Transmission Date: 20120928
  Serious: Yes (Hospitalization)
  Sender: FDA-Public Use
  Company Number: US-ASTRAZENECA-2007UW09768

PATIENT
  Age: 49 Year
  Sex: Female
  Weight: 89.8 kg

DRUGS (8)
  1. AVANDIA [Concomitant]
     Dates: start: 20060824
  2. HYDROCODONE BITARTRATE AND ACETAMINOPHEN [Concomitant]
     Dosage: 5/500 TAB
     Dates: start: 20070113
  3. SEROQUEL [Suspect]
     Indication: BIPOLAR DISORDER
     Dosage: 50 MG, 100 MG AND 200 MG
     Route: 048
     Dates: start: 19970101
  4. ZYPREXA [Concomitant]
     Dates: start: 19960101
  5. LISINOPRIL [Concomitant]
     Dates: start: 20060818
  6. IMIPRAMINE HCL [Concomitant]
     Dates: start: 20060214
  7. SEROQUEL [Suspect]
     Route: 048
     Dates: start: 20051202
  8. SEROQUEL [Suspect]
     Dosage: 100 MG QHS
     Route: 048
     Dates: start: 20060818

REACTIONS (4)
  - TYPE 2 DIABETES MELLITUS [None]
  - BLOOD TRIGLYCERIDES INCREASED [None]
  - ASTHMA [None]
  - BLOOD CHOLESTEROL INCREASED [None]
